FAERS Safety Report 17826699 (Version 1)
Quarter: 2020Q2

REPORT INFORMATION
  Report Type: Spontaneous
  Country: DE (occurrence: DE)
  Receive Date: 20200527
  Receipt Date: 20200527
  Transmission Date: 20200714
  Serious: Yes (Hospitalization, Other)
  Sender: FDA-Public Use
  Company Number: DE-009507513-2005DEU007871

PATIENT
  Age: 39 Year

DRUGS (5)
  1. MENOGON [Suspect]
     Active Substance: MENOTROPINS
  2. PROGESTERONE. [Concomitant]
     Active Substance: PROGESTERONE
  3. GONAL-F [Suspect]
     Active Substance: FOLLITROPIN
  4. ORGALUTRAN [Suspect]
     Active Substance: GANIRELIX ACETATE
  5. OVITRELLE [Suspect]
     Active Substance: CHORIOGONADOTROPIN ALFA

REACTIONS (2)
  - Ascites [Recovered/Resolved]
  - Ovarian hyperstimulation syndrome [Recovered/Resolved]

NARRATIVE: CASE EVENT DATE: 20120713
